FAERS Safety Report 25658028 (Version 1)
Quarter: 2025Q3

REPORT INFORMATION
  Report Type: Spontaneous
  Country: EU (occurrence: EU)
  Receive Date: 20250808
  Receipt Date: 20250808
  Transmission Date: 20251021
  Serious: Yes (Other)
  Sender: ACCORD
  Company Number: None

PATIENT
  Age: 35 Year
  Sex: Female

DRUGS (2)
  1. ESCITALOPRAM [Suspect]
     Active Substance: ESCITALOPRAM OXALATE
     Indication: Burnout syndrome
     Dosage: STRENGTH: 20MG
     Dates: start: 20160812, end: 20180601
  2. MIRENA [Concomitant]
     Active Substance: LEVONORGESTREL

REACTIONS (11)
  - Impaired reasoning [Recovered/Resolved]
  - Disturbance in social behaviour [Recovered/Resolved]
  - Mania [Recovered/Resolved]
  - Syncope [Recovered/Resolved]
  - Overconfidence [Recovered/Resolved]
  - Personality change [Unknown]
  - Somnolence [Recovered/Resolved]
  - Judgement impaired [Recovered/Resolved]
  - Delusion of grandeur [Recovered/Resolved]
  - Victim of sexual abuse [Unknown]
  - Hypersexuality [Recovered/Resolved]

NARRATIVE: CASE EVENT DATE: 20160101
